FAERS Safety Report 7546102-2 (Version None)
Quarter: 2011Q2

REPORT INFORMATION
  Report Type: 
  Country: None (occurrence: None)
  Receive Date: 20110614
  Receipt Date: 20110602
  Transmission Date: 20111010
  Serious: Yes (Other)
  Sender: FDA-Public Use
  Company Number: PHHY2010CA22471

PATIENT
  Sex: Male

DRUGS (14)
  1. FOLIC ACID [Concomitant]
  2. SOTALOL HCL [Concomitant]
  3. FLOMAX [Concomitant]
  4. INSULIN [Concomitant]
  5. COUMADIN [Concomitant]
  6. EXJADE [Suspect]
     Indication: THALASSAEMIA BETA
     Dosage: 500 MG, QD
     Route: 048
     Dates: start: 20091212
  7. GABAPENTIN [Concomitant]
  8. DIDROCAL [Concomitant]
  9. HYDROXYUREA [Concomitant]
  10. PERCOCET [Concomitant]
  11. SERTRALINE HYDROCHLORIDE [Concomitant]
  12. VITAMIN D [Concomitant]
  13. OXYCONTIN [Concomitant]
     Dosage: UNK
  14. CALCIUM CARBONATE [Concomitant]

REACTIONS (10)
  - EYE MOVEMENT DISORDER [None]
  - MUSCULAR WEAKNESS [None]
  - PAIN IN EXTREMITY [None]
  - FLATULENCE [None]
  - DIZZINESS [None]
  - WEIGHT INCREASED [None]
  - FEELING COLD [None]
  - TREMOR [None]
  - BACK PAIN [None]
  - OEDEMA PERIPHERAL [None]
